FAERS Safety Report 4976573-7 (Version None)
Quarter: 2006Q2

REPORT INFORMATION
  Report Type: 
  Country: None (occurrence: None)
  Receive Date: 20060419
  Receipt Date: 20050930
  Transmission Date: 20061013
  Serious: Yes (Hospitalization, Disabling)
  Sender: FDA-Public Use
  Company Number: US-MERCK-0510USA02101

PATIENT
  Age: 66 Year
  Sex: Male
  Weight: 130 kg

DRUGS (18)
  1. VIOXX [Suspect]
     Indication: ARTHRALGIA
     Route: 048
     Dates: start: 20020705, end: 20040817
  2. VIOXX [Suspect]
     Route: 048
     Dates: start: 20020705, end: 20040817
  3. TRENTAL [Concomitant]
     Route: 065
  4. CENTRUM SILVER [Concomitant]
     Route: 065
  5. CEPHALEXIN [Concomitant]
     Route: 048
  6. ACETAMINOPHEN AND PROPOXYPHENE NAPSYLATE [Concomitant]
     Route: 048
  7. METHYLPREDNISOLONE [Concomitant]
     Route: 048
  8. PREDNISONE [Concomitant]
     Route: 048
  9. HYDROXYZINE PAMOATE [Concomitant]
     Route: 065
  10. CIMETIDINE [Concomitant]
     Route: 065
  11. BENZONATATE [Concomitant]
     Route: 048
  12. LEVAQUIN [Concomitant]
     Route: 048
  13. INDOMETHACIN SODIUM [Concomitant]
     Route: 048
  14. COLCHICINE [Concomitant]
     Route: 065
  15. BEXTRA [Concomitant]
     Route: 048
  16. ZOCOR [Concomitant]
     Route: 048
  17. METOPROLOL [Concomitant]
     Route: 048
  18. FOLIC ACID [Concomitant]
     Route: 048

REACTIONS (6)
  - FOOT FRACTURE [None]
  - HYPERGLYCAEMIA [None]
  - HYPERTENSION [None]
  - ISCHAEMIC STROKE [None]
  - NEUROPATHY PERIPHERAL [None]
  - TRANSIENT ISCHAEMIC ATTACK [None]
